FAERS Safety Report 12907074 (Version 1)
Quarter: 2016Q4

REPORT INFORMATION
  Report Type: Report from Study
  Country: IT (occurrence: IT)
  Receive Date: 20161103
  Receipt Date: 20161103
  Transmission Date: 20170207
  Serious: Yes (Hospitalization)
  Sender: FDA-Public Use
  Company Number: IT-TEVA-707593ACC

PATIENT
  Age: 47 Year
  Sex: Female

DRUGS (3)
  1. OCTREOTIDE. [Suspect]
     Active Substance: OCTREOTIDE
     Indication: NEUROENDOCRINE TUMOUR
     Route: 030
     Dates: start: 20160805, end: 20160915
  2. METFORMINA TEVA [Suspect]
     Active Substance: METFORMIN HYDROCHLORIDE
     Indication: NEUROENDOCRINE TUMOUR
     Dosage: 500 MILLIGRAM DAILY;
     Route: 048
     Dates: start: 20160915, end: 20160921
  3. EVEROLIMUS [Suspect]
     Active Substance: EVEROLIMUS
     Indication: NEUROENDOCRINE TUMOUR
     Dosage: 5 MILLIGRAM DAILY;
     Route: 048
     Dates: start: 20160819, end: 20160901

REACTIONS (2)
  - Diarrhoea [Recovered/Resolved]
  - Hypokalaemia [Recovered/Resolved]

NARRATIVE: CASE EVENT DATE: 20161001
